FAERS Safety Report 14153093 (Version 1)
Quarter: 2017Q4

REPORT INFORMATION
  Report Type: Spontaneous
  Country: GB (occurrence: GB)
  Receive Date: 20171102
  Receipt Date: 20171102
  Transmission Date: 20180321
  Serious: Yes (Other)
  Sender: FDA-Public Use
  Company Number: GB-009507513-1711GBR000645

PATIENT
  Age: 45 Year
  Sex: Male

DRUGS (5)
  1. VELCADE [Suspect]
     Active Substance: BORTEZOMIB
     Indication: PLASMA CELL MYELOMA
     Dosage: 3 CYCLES
     Route: 065
  2. DEXAMETHASONE. [Suspect]
     Active Substance: DEXAMETHASONE
     Indication: PLASMA CELL MYELOMA
     Dosage: FULL DOSING REGIMEN NOT REPORTED, 3 CYCLES
     Route: 065
     Dates: start: 2014
  3. VELCADE [Suspect]
     Active Substance: BORTEZOMIB
     Dosage: 2 CYCLES
     Route: 065
     Dates: start: 2014
  4. DEXAMETHASONE. [Suspect]
     Active Substance: DEXAMETHASONE
     Dosage: 2 CYCLES
     Route: 065
  5. CYCLOPHOSPHAMIDE. [Suspect]
     Active Substance: CYCLOPHOSPHAMIDE
     Indication: PLASMA CELL MYELOMA
     Dosage: 3 CYCLES
     Route: 065
     Dates: start: 2014

REACTIONS (3)
  - Neuropathy peripheral [Unknown]
  - Cytopenia [Unknown]
  - Drug effect incomplete [Unknown]
